FAERS Safety Report 6940484-8 (Version None)
Quarter: 2010Q3

REPORT INFORMATION
  Report Type: 
  Country: None (occurrence: None)
  Receive Date: 20100825
  Receipt Date: 20100817
  Transmission Date: 20110219
  Serious: Yes (Hospitalization)
  Sender: FDA-Public Use
  Company Number: US-SANOFI-AVENTIS-2010SA039098

PATIENT
  Age: 78 Year
  Sex: Female
  Weight: 88.18 kg

DRUGS (10)
  1. MULTAQ [Suspect]
     Route: 048
     Dates: start: 20100608, end: 20100611
  2. LASIX [Concomitant]
  3. VERAPAMIL [Concomitant]
     Indication: HYPERTENSION
  4. PRAVASTATIN [Concomitant]
  5. ALTACE [Concomitant]
     Indication: ANGIOTENSIN CONVERTING ENZYME
     Dates: start: 20070801
  6. LEVOTHYROXINE [Concomitant]
  7. ZYLOPRIM [Concomitant]
  8. COUMADIN [Concomitant]
     Indication: AORTIC VALVE REPLACEMENT
     Dosage: DOSE VARIES ACCORDING TO LEVELS
     Dates: start: 20070801
  9. COUMADIN [Concomitant]
     Indication: MITRAL VALVE REPLACEMENT
     Dosage: DOSE VARIES ACCORDING TO LEVELS
     Dates: start: 20070801
  10. POTASSIUM [Concomitant]

REACTIONS (3)
  - CHEST PAIN [None]
  - DYSPNOEA [None]
  - IDIOSYNCRATIC DRUG REACTION [None]
